FAERS Safety Report 9550791 (Version 2)
Quarter: 2019Q3

REPORT INFORMATION
  Report Type: Report from Study
  Country: US (occurrence: US)
  Receive Date: 20130924
  Receipt Date: 20190807
  Transmission Date: 20191005
  Serious: Yes (Other)
  Sender: FDA-Public Use
  Company Number: US-SANOFI-AVENTIS-2013SA048166

PATIENT
  Age: 66 Year
  Sex: Female

DRUGS (1)
  1. TERIFLUNOMIDE. [Suspect]
     Active Substance: TERIFLUNOMIDE
     Indication: MULTIPLE SCLEROSIS
     Dosage: 14 MG,QD
     Route: 048
     Dates: start: 20130201, end: 20180730

REACTIONS (16)
  - Neuropathy peripheral [Unknown]
  - Dehydration [Unknown]
  - Limb discomfort [Unknown]
  - Paraesthesia [Not Recovered/Not Resolved]
  - Hair texture abnormal [Unknown]
  - Pain in extremity [Not Recovered/Not Resolved]
  - Alopecia [Recovering/Resolving]
  - Viral infection [Unknown]
  - Gait disturbance [Unknown]
  - Product dose omission [Unknown]
  - Unevaluable event [Not Recovered/Not Resolved]
  - Malaise [Unknown]
  - Fatigue [Unknown]
  - Multiple sclerosis relapse [Not Recovered/Not Resolved]
  - Hair disorder [Unknown]
  - Tremor [Not Recovered/Not Resolved]

NARRATIVE: CASE EVENT DATE: 2013
